FAERS Safety Report 13990512 (Version 1)
Quarter: 2017Q3

REPORT INFORMATION
  Report Type: Spontaneous
  Country: FR (occurrence: FR)
  Receive Date: 20170920
  Receipt Date: 20170920
  Transmission Date: 20171128
  Serious: Yes (Other)
  Sender: FDA-Public Use
  Company Number: FR-ACCORD-058662

PATIENT
  Age: 39 Year
  Sex: Female

DRUGS (2)
  1. CARBOPLATIN ACCORD [Suspect]
     Active Substance: CARBOPLATIN
     Indication: CYSTADENOCARCINOMA OVARY
     Route: 042
     Dates: start: 20170621, end: 20170621
  2. PACLITAXEL KABI [Suspect]
     Active Substance: PACLITAXEL
     Indication: CYSTADENOCARCINOMA OVARY
     Route: 042
     Dates: start: 20170620, end: 20170620

REACTIONS (3)
  - Hypertension [Recovered/Resolved]
  - Tachycardia [Recovered/Resolved]
  - Hot flush [Recovered/Resolved]

NARRATIVE: CASE EVENT DATE: 20170621
